FAERS Safety Report 4635995-4 (Version None)
Quarter: 2005Q2

REPORT INFORMATION
  Report Type: 
  Country: None (occurrence: None)
  Receive Date: 20050415
  Receipt Date: 20050404
  Transmission Date: 20051028
  Serious: Yes (Hospitalization)
  Sender: FDA-Public Use
  Company Number: FR-BRISTOL-MYERS SQUIBB COMPANY-12921656

PATIENT
  Age: 75 Year
  Sex: Female
  Weight: 85 kg

DRUGS (6)
  1. APROVEL TABS 150 MG [Suspect]
     Route: 048
  2. DOLIPRANE [Suspect]
  3. VIOXX [Suspect]
  4. ARIXTRA [Suspect]
     Route: 058
     Dates: start: 20040624
  5. MOPRAL [Suspect]
  6. FUMAFER [Suspect]

REACTIONS (1)
  - DEEP VEIN THROMBOSIS [None]
